FAERS Safety Report 5299013-X (Version None)
Quarter: 2007Q2

REPORT INFORMATION
  Report Type: 
  Country: None (occurrence: None)
  Receive Date: 20070403
  Receipt Date: 20070321
  Transmission Date: 20071010
  Serious: Yes (Other)
  Sender: FDA-Public Use
  Company Number: AECAN200700071

PATIENT
  Age: 71 Year
  Sex: Female

DRUGS (2)
  1. IGIVNEX - TALECRIS (IMMUNE GLOBULIN IV (HUMAN), CAPRYLATE/CHROMATOGRAP [Suspect]
     Indication: PSEUDOMEMBRANOUS COLITIS
     Dosage: 80 ML; IV
     Route: 042
     Dates: start: 20070303, end: 20070304
  2. (CON.) [Concomitant]

REACTIONS (12)
  - ANURIA [None]
  - BONE PAIN [None]
  - CHILLS [None]
  - DYSPNOEA [None]
  - HYPERTENSION [None]
  - HYPOTENSION [None]
  - OXYGEN SATURATION DECREASED [None]
  - PALLOR [None]
  - PYREXIA [None]
  - TACHYCARDIA [None]
  - TACHYPNOEA [None]
  - TREMOR [None]
